FAERS Safety Report 14904973 (Version 1)
Quarter: 2018Q2

REPORT INFORMATION
  Report Type: Spontaneous
  Country: US (occurrence: US)
  Receive Date: 20180517
  Receipt Date: 20180517
  Transmission Date: 20180711
  Serious: No
  Sender: FDA-Public Use
  Company Number: US-SA-2017SA214502

PATIENT
  Sex: Male

DRUGS (1)
  1. LANTUS [Suspect]
     Active Substance: INSULIN GLARGINE
     Indication: TYPE 2 DIABETES MELLITUS
     Dosage: DOSE AND DAILY DOSE-30-35U
     Route: 051

REACTIONS (4)
  - Visual impairment [Unknown]
  - Intentional product misuse [Unknown]
  - Renal disorder [Unknown]
  - Blood glucose increased [Unknown]
